FAERS Safety Report 7050957-8 (Version None)
Quarter: 2010Q4

REPORT INFORMATION
  Report Type: 
  Country: None (occurrence: None)
  Receive Date: 20101019
  Receipt Date: 20101014
  Transmission Date: 20110411
  Serious: Yes (Hospitalization)
  Sender: FDA-Public Use
  Company Number: GB-US-EMD SERONO, INC.-7009035

PATIENT
  Sex: Male

DRUGS (2)
  1. SAIZEN [Suspect]
     Indication: PRODUCT USED FOR UNKNOWN INDICATION
     Dates: start: 20100621, end: 20100601
  2. SAIZEN [Suspect]
     Dates: start: 20100601

REACTIONS (2)
  - EAR OPERATION [None]
  - SHUNT MALFUNCTION [None]
